FAERS Safety Report 7445075-0 (Version None)
Quarter: 2011Q2

REPORT INFORMATION
  Report Type: 
  Country: None (occurrence: None)
  Receive Date: 20110429
  Receipt Date: 20101228
  Transmission Date: 20111010
  Serious: Yes (Life-Threatening, Hospitalization)
  Sender: FDA-Public Use
  Company Number: DE-SANOFI-AVENTIS-2010SA034098

PATIENT
  Age: 59 Year
  Sex: Female

DRUGS (7)
  1. DOXYCYCLINE [Concomitant]
     Route: 048
     Dates: start: 20100304, end: 20100304
  2. DOLORMIN [Concomitant]
     Indication: GINGIVAL OPERATION
     Dates: start: 20100304, end: 20100304
  3. BLOPRESS PLUS [Suspect]
     Indication: HYPERTENSION
  4. CYCLOKAPRON [Concomitant]
     Indication: VON WILLEBRAND'S DISEASE
     Route: 048
     Dates: start: 20100303, end: 20100305
  5. DESMOPRESSIN ACETATE [Suspect]
     Indication: VON WILLEBRAND'S DISEASE
     Route: 042
     Dates: start: 20100304, end: 20100304
  6. DESMOPRESSIN ACETATE [Suspect]
     Indication: DENTAL IMPLANTATION
     Route: 042
     Dates: start: 20100304, end: 20100304
  7. DOXYCYCLINE [Concomitant]
     Route: 048
     Dates: start: 20100305, end: 20100305

REACTIONS (4)
  - HYPOKALAEMIA [None]
  - HYPONATRAEMIA [None]
  - BRAIN OEDEMA [None]
  - HYPOCHLORAEMIA [None]
